FAERS Safety Report 11215574 (Version 9)
Quarter: 2015Q4

REPORT INFORMATION
  Report Type: Report from Study
  Country: JP (occurrence: JP)
  Receive Date: 20150624
  Receipt Date: 20151102
  Transmission Date: 20160304
  Serious: Yes (Hospitalization)
  Sender: FDA-Public Use
  Company Number: JP-ROCHE-1598456

PATIENT
  Age: 67 Year
  Sex: Female
  Weight: 41 kg

DRUGS (5)
  1. CANDESARTAN [Concomitant]
     Active Substance: CANDESARTAN
     Route: 048
  2. PROMAC (JAPAN) [Concomitant]
     Route: 048
     Dates: end: 20150615
  3. VEMURAFENIB [Suspect]
     Active Substance: VEMURAFENIB
     Indication: MALIGNANT MELANOMA
     Route: 048
     Dates: start: 20150603, end: 20150615
  4. CRESTOR [Concomitant]
     Active Substance: ROSUVASTATIN CALCIUM
     Route: 048
     Dates: end: 20150615
  5. AMLODIPINE [Concomitant]
     Active Substance: AMLODIPINE BESYLATE
     Route: 048

REACTIONS (7)
  - Erythema multiforme [Recovering/Resolving]
  - Acute kidney injury [Recovered/Resolved]
  - Arthralgia [Recovering/Resolving]
  - Dehydration [Unknown]
  - Anaemia [Unknown]
  - White blood cell count decreased [Unknown]
  - Decreased appetite [Recovered/Resolved]

NARRATIVE: CASE EVENT DATE: 20150615
